FAERS Safety Report 14789904 (Version 2)
Quarter: 2018Q2

REPORT INFORMATION
  Report Type: Spontaneous
  Country: US (occurrence: US)
  Receive Date: 20180423
  Receipt Date: 20180515
  Transmission Date: 20180711
  Serious: No
  Sender: FDA-Public Use
  Company Number: US-PFIZER INC-2018163486

PATIENT
  Age: 72 Year
  Sex: Male
  Weight: 102.1 kg

DRUGS (12)
  1. NIZORAL [Concomitant]
     Active Substance: KETOCONAZOLE
     Dosage: UNK (APPLY TO SCALP AND ALLOW TO SIT FOR 5 MINUTES BEFORE RINSING)
  2. TAMBOCOR [Concomitant]
     Active Substance: FLECAINIDE ACETATE
     Dosage: 100 MG, UNK
  3. EUCRISA [Suspect]
     Active Substance: CRISABOROLE
     Indication: RASH
     Dosage: UNK
     Route: 061
  4. LOTENSIN HCT [Concomitant]
     Active Substance: BENAZEPRIL HYDROCHLORIDE\HYDROCHLOROTHIAZIDE
     Dosage: 1 DF, UNK (BENAZEPRIL HYDROCHLORIDE: 10MG/ HYDROCHLOROTHIAZIDE: 12.5MG)
  5. EXELON [Concomitant]
     Active Substance: RIVASTIGMINE TARTRATE
     Dosage: 1.5 MG, UNK
  6. FML [Concomitant]
     Active Substance: FLUOROMETHOLONE
     Dosage: 0.1 % OPHTHALMIC SUSPENSION
     Route: 047
  7. L METHYL MC NAC [Concomitant]
     Dosage: UNK [MECOBALAMIN 2 MG]/[ ACETYLCYSTEINE 600 MG]/[CALCIUM LEVOMEFOLATE 6 MG]
  8. LOPRESSOR [Concomitant]
     Active Substance: METOPROLOL TARTRATE
     Dosage: 25 MG, DAILY
  9. MIRAPEX [Concomitant]
     Active Substance: PRAMIPEXOLE DIHYDROCHLORIDE
     Dosage: 0.5 MG, UNK
  10. LIPITOR [Concomitant]
     Active Substance: ATORVASTATIN CALCIUM
     Dosage: 40 MG, UNK
  11. ELIQUIS [Concomitant]
     Active Substance: APIXABAN
     Dosage: 5 MG, UNK
  12. LASIX [Concomitant]
     Active Substance: FUROSEMIDE
     Dosage: 20 MG, UNK

REACTIONS (5)
  - Product use in unapproved indication [Unknown]
  - Application site pain [Recovered/Resolved]
  - Poor quality drug administered [Unknown]
  - Product quality issue [Unknown]
  - Application site irritation [Recovered/Resolved]

NARRATIVE: CASE EVENT DATE: 20180219
